FAERS Safety Report 4517716-9 (Version None)
Quarter: 2004Q4

REPORT INFORMATION
  Report Type: 
  Country: None (occurrence: None)
  Receive Date: 20041203
  Receipt Date: 20041124
  Transmission Date: 20050328
  Serious: Yes (Hospitalization)
  Sender: FDA-Public Use
  Company Number: PHBS2004ES15814

PATIENT
  Age: 72 Year
  Sex: Male

DRUGS (11)
  1. TRILEPTAL [Suspect]
     Route: 065
     Dates: end: 20021212
  2. PHENYTOIN [Concomitant]
     Route: 065
  3. SOMAZINA [Concomitant]
     Route: 065
  4. PLAVIX [Concomitant]
     Route: 065
  5. ASPIRIN [Concomitant]
     Route: 065
  6. STILNOX [Concomitant]
  7. NOLOTIL [Concomitant]
  8. FOSINOPRIL SODIUM [Concomitant]
     Route: 065
  9. BENESTAN - SLOW RELEASE [Concomitant]
  10. DETRUSITOL [Concomitant]
  11. FLURAZEPAM HCL [Concomitant]

REACTIONS (2)
  - BLOOD SODIUM DECREASED [None]
  - INAPPROPRIATE ANTIDIURETIC HORMONE SECRETION [None]
